FAERS Safety Report 13805303 (Version 1)
Quarter: 2017Q3

REPORT INFORMATION
  Report Type: Spontaneous
  Country: GB (occurrence: GB)
  Receive Date: 20170728
  Receipt Date: 20170728
  Transmission Date: 20171127
  Serious: Yes (Disabling)
  Sender: FDA-Public Use
  Company Number: GB-TEVA-761219ACC

PATIENT
  Age: 63 Year
  Sex: Female
  Weight: 79 kg

DRUGS (16)
  1. ALENDRONIC ACID [Concomitant]
     Active Substance: ALENDRONIC ACID
     Dosage: 1 DOSAGE FORMS DAILY;
     Dates: start: 20161221
  2. ALENDRONIC ACID [Concomitant]
     Active Substance: ALENDRONIC ACID
     Dates: start: 20161221
  3. CARBOCISTEINE [Concomitant]
     Active Substance: CARBOCYSTEINE
     Dosage: 6 DOSAGE FORMS DAILY;
     Dates: start: 20170327
  4. NYSTAN [Concomitant]
     Active Substance: NYSTATIN
     Dosage: 4 ML DAILY;
     Dates: start: 20170306, end: 20170313
  5. PREDNISOLONE. [Concomitant]
     Active Substance: PREDNISOLONE
     Dosage: 6 DOSAGE FORMS DAILY;
     Dates: start: 20170110, end: 20170117
  6. VOLUMATIC [Concomitant]
     Dosage: USE AS DIRECTED
     Dates: start: 20170110, end: 20170209
  7. CLOTRIMAZOLE. [Concomitant]
     Active Substance: CLOTRIMAZOLE
     Dosage: 1 DOSAGE FORMS DAILY;
     Dates: start: 20170306
  8. GABAPENTIN. [Suspect]
     Active Substance: GABAPENTIN
     Dates: start: 20170404
  9. TIOTROPIUM [Concomitant]
     Active Substance: TIOTROPIUM
     Dosage: 1 DOSAGE FORMS DAILY;
     Route: 055
     Dates: start: 20161221
  10. TRAZODONE [Concomitant]
     Active Substance: TRAZODONE HYDROCHLORIDE
     Dosage: USE AS DIRECTED
     Dates: start: 20161221
  11. ZAPAIN [Concomitant]
     Active Substance: ACETAMINOPHEN\CODEINE PHOSPHATE
     Dosage: TAKE 1 OR 2 4 TIMES/DAY AS NEEDED
     Dates: start: 20161221
  12. ZOPICLONE [Concomitant]
     Active Substance: ZOPICLONE
     Dosage: 1 DOSAGE FORMS DAILY;
     Dates: start: 20161221
  13. AMOXICILLIN. [Concomitant]
     Active Substance: AMOXICILLIN
     Dosage: 3 DOSAGE FORMS DAILY;
     Dates: start: 20170213, end: 20170218
  14. DOXYCYCLINE. [Concomitant]
     Active Substance: DOXYCYCLINE
     Dosage: TWO NOW THEN ONE DAILY
     Dates: start: 20170110, end: 20170117
  15. SALBUTAMOL [Concomitant]
     Active Substance: ALBUTEROL
     Route: 055
     Dates: start: 20161221
  16. FORMOTEROL FUMARATE [Concomitant]
     Active Substance: FORMOTEROL FUMARATE
     Dosage: 2 DOSAGE FORMS DAILY;
     Route: 055
     Dates: start: 20161221

REACTIONS (3)
  - Dyspnoea [Recovering/Resolving]
  - Headache [Recovering/Resolving]
  - Pain [Unknown]

NARRATIVE: CASE EVENT DATE: 20170404
